FAERS Safety Report 8012050-7 (Version None)
Quarter: 2011Q4

REPORT INFORMATION
  Report Type: 
  Country: None (occurrence: None)
  Receive Date: 20111228
  Receipt Date: 20111220
  Transmission Date: 20120403
  Serious: Yes (Other)
  Sender: FDA-Public Use
  Company Number: CN-GLAXOSMITHKLINE-B0771792A

PATIENT
  Age: 61 Year
  Sex: Male

DRUGS (11)
  1. FELODIPINE [Concomitant]
     Indication: HYPERTENSION
     Dosage: 5MG PER DAY
     Route: 048
     Dates: start: 20100609
  2. ASPIRIN [Concomitant]
     Indication: THROMBOSIS PROPHYLAXIS
     Dosage: 200MG PER DAY
     Route: 048
     Dates: start: 20100609
  3. EDARAVONE [Concomitant]
     Indication: CEREBROVASCULAR SPASM
     Dosage: 20MG PER DAY
     Route: 042
     Dates: start: 20100609
  4. FOLIC ACID [Concomitant]
     Route: 048
  5. PAROXETINE HCL [Suspect]
     Indication: ANXIETY
     Dosage: 20MG PER DAY
     Route: 048
     Dates: start: 20100611
  6. FASUDIL HYDROCHLORIDE [Concomitant]
     Indication: CEREBROVASCULAR SPASM
     Dosage: 30MG PER DAY
     Route: 042
     Dates: start: 20100609
  7. VINPOCETINE [Concomitant]
     Indication: CEREBROVASCULAR SPASM
     Dosage: 20MG PER DAY
     Route: 042
     Dates: start: 20100609
  8. VITAMIN B-12 [Concomitant]
     Route: 048
  9. PROTEIN HYDROLYSATE INJ [Suspect]
     Indication: CEREBROVASCULAR SPASM
     Dosage: 120MG PER DAY
     Route: 042
     Dates: start: 20100609
  10. FOSINOPRIL SODIUM [Concomitant]
     Indication: HYPERTENSION
     Dosage: 10MG PER DAY
     Route: 048
     Dates: start: 20100609
  11. MECOBALAMIN [Concomitant]
     Route: 048

REACTIONS (6)
  - DRUG INTERACTION [None]
  - DYSPHONIA [None]
  - AIRWAY COMPLICATION OF ANAESTHESIA [None]
  - HYPERTENSION [None]
  - CEREBRAL INFARCTION [None]
  - EXTENSOR PLANTAR RESPONSE [None]
